FAERS Safety Report 8520180-6 (Version None)
Quarter: 2012Q3

REPORT INFORMATION
  Report Type: 
  Country: None (occurrence: None)
  Receive Date: 20120719
  Receipt Date: 20120710
  Transmission Date: 20120928
  Serious: Yes (Other)
  Sender: FDA-Public Use
  Company Number: JP-JNJFOC-20120609038

PATIENT
  Sex: Female
  Weight: 49 kg

DRUGS (3)
  1. VERAPAMIL HCL [Concomitant]
     Indication: ARRHYTHMIA
     Route: 048
     Dates: start: 20120519, end: 20120529
  2. MUCOSTA [Concomitant]
     Indication: GASTRITIS
     Route: 048
     Dates: start: 20120218
  3. GALANTAMINE HYDROBROMIDE [Suspect]
     Indication: DEMENTIA ALZHEIMER'S TYPE
     Route: 048
     Dates: start: 20120421, end: 20120519

REACTIONS (3)
  - ARRHYTHMIA [None]
  - COUGH [None]
  - VENTRICULAR EXTRASYSTOLES [None]
